FAERS Safety Report 4334460-1 (Version None)
Quarter: 2004Q2

REPORT INFORMATION
  Report Type: 
  Country: None (occurrence: None)
  Receive Date: 20040407
  Receipt Date: 20040109
  Transmission Date: 20050107
  Serious: Yes (Hospitalization)
  Sender: FDA-Public Use
  Company Number: JP-MERCK-0401USA00877

PATIENT
  Age: 13 Year
  Sex: Female
  Weight: 43 kg

DRUGS (7)
  1. [THERAPY UNSPECIFIED] [Concomitant]
     Indication: LYMPHOMA
     Route: 065
  2. ASPARAGINASE (AS DRUG) [Concomitant]
     Indication: LYMPHOMA
     Route: 065
     Dates: start: 20030104
  3. DAUNORUBICIN HYDROCHLORIDE [Concomitant]
     Indication: LYMPHOMA
     Route: 065
     Dates: start: 20030104
  4. DECADRON [Suspect]
     Indication: LYMPHOMA
     Route: 048
     Dates: start: 20021221
  5. LEUCOVORIN CALCIUM [Concomitant]
     Indication: LYMPHOMA
     Route: 065
  6. METHOTREXATE [Concomitant]
     Indication: LYMPHOMA
     Route: 065
  7. VINCRISTINE SULFATE [Concomitant]
     Indication: LYMPHOMA
     Route: 065
     Dates: start: 20030104

REACTIONS (1)
  - DIABETES MELLITUS NON-INSULIN-DEPENDENT [None]
